FAERS Safety Report 9357740 (Version 1)
Quarter: 2013Q2

REPORT INFORMATION
  Report Type: Spontaneous
  Country: US (occurrence: None)
  Receive Date: 20130619
  Receipt Date: 20130619
  Transmission Date: 20140414
  Serious: Yes (Death)
  Sender: FDA-Public Use
  Company Number: None

PATIENT
  Age: 55 Year
  Sex: Female
  Weight: 109.32 kg

DRUGS (6)
  1. PEG-3350, NACL, NAHCO3, AND KCL AFFORDABLE PHARMACEUTICALS BRAINTREE MA [Suspect]
     Indication: COLONOSCOPY
     Dates: start: 201003, end: 201311
  2. CLONAZEPAM [Concomitant]
  3. ACYCLOVIR [Concomitant]
  4. BUPROPION [Concomitant]
  5. ZALEPLN [Concomitant]
  6. ZIPRASIDONE [Concomitant]

REACTIONS (1)
  - Hyponatraemia [None]
